FAERS Safety Report 15304933 (Version 2)
Quarter: 2018Q4

REPORT INFORMATION
  Report Type: Spontaneous
  Country: US (occurrence: US)
  Receive Date: 20180822
  Receipt Date: 20181115
  Transmission Date: 20190204
  Serious: Yes (Other)
  Sender: FDA-Public Use
  Company Number: US-PRINSTON PHARMACEUTICAL INC.-2018PRN00824

PATIENT
  Age: 54 Year
  Sex: Female
  Weight: 74.83 kg

DRUGS (5)
  1. VALSARTAN. [Suspect]
     Active Substance: VALSARTAN
     Dosage: 120 MG, 1X/DAY
     Route: 048
  2. VALSARTAN. [Suspect]
     Active Substance: VALSARTAN
     Dosage: 160 MG, 1X/DAY
     Route: 048
  3. VALSARTAN. [Suspect]
     Active Substance: VALSARTAN
     Dosage: 320 MG, 1X/DAY
     Route: 048
  4. VALSARTAN. [Suspect]
     Active Substance: VALSARTAN
     Indication: HYPERTENSION
     Dosage: 40 MG, 1X/DAY
     Route: 048
  5. VALSARTAN. [Suspect]
     Active Substance: VALSARTAN
     Dosage: 80 MG, 1X/DAY
     Route: 048

REACTIONS (2)
  - Appendix cancer [Not Recovered/Not Resolved]
  - Colon cancer metastatic [Not Recovered/Not Resolved]

NARRATIVE: CASE EVENT DATE: 20171111
